FAERS Safety Report 11916352 (Version 4)
Quarter: 2017Q2

REPORT INFORMATION
  Report Type: Report from Study
  Country: KR (occurrence: KR)
  Receive Date: 20160114
  Receipt Date: 20170602
  Transmission Date: 20170829
  Serious: Yes (Death)
  Sender: FDA-Public Use
  Company Number: KR-OTSUKA-2016_001130

PATIENT
  Age: 39 Year
  Sex: Female

DRUGS (18)
  1. METRONIDAZOLE BAXTER [Concomitant]
     Active Substance: METRONIDAZOLE
     Indication: HYPONATRAEMIA
     Dosage: 1500 MG, QD
     Route: 042
     Dates: start: 20140514, end: 20140519
  2. PETHIDINE HCL [Concomitant]
     Indication: PRE-EXISTING DISEASE
     Dosage: 25 MG, QD
     Route: 042
     Dates: start: 20140512, end: 20140525
  3. GASOCOL [Concomitant]
     Indication: PRE-EXISTING DISEASE
     Dosage: 10 ML, QD (SOLUTION)
     Route: 048
     Dates: start: 20140514, end: 20140514
  4. CITOPCIN [Concomitant]
     Indication: PRE-EXISTING DISEASE
     Dosage: 400 MG, QD
     Route: 042
     Dates: start: 20140512, end: 20140514
  5. GASTER [Concomitant]
     Active Substance: FAMOTIDINE
     Indication: PRE-EXISTING DISEASE
     Dosage: 40 MG, QD
     Route: 042
     Dates: start: 20140512, end: 20140523
  6. MACPERAN [Concomitant]
     Active Substance: METOCLOPRAMIDE HYDROCHLORIDE
     Indication: PRE-EXISTING DISEASE
     Dosage: 20 MG, QD
     Route: 042
     Dates: start: 20140512
  7. HYSPAN [Concomitant]
     Indication: PRE-EXISTING DISEASE
     Dosage: 20 MG, QD
     Route: 042
     Dates: start: 20140514, end: 20140514
  8. PHENIRAMINE [Concomitant]
     Active Substance: PHENIRAMINE
     Indication: PRE-EXISTING DISEASE
     Dosage: 4 MG, QD
     Route: 042
     Dates: start: 20140514, end: 20140522
  9. MIDAZOLAM [Concomitant]
     Active Substance: MIDAZOLAM HYDROCHLORIDE
     Indication: PRE-EXISTING DISEASE
     Dosage: 5 MG, QD (5MG/5ML)
     Route: 042
     Dates: start: 20140514, end: 20140514
  10. FENTANYL HANLIM [Concomitant]
     Indication: PRE-EXISTING DISEASE
     Dosage: 0.025 MG, QD
     Route: 042
     Dates: start: 20140519, end: 20140519
  11. VIVIR [Concomitant]
     Indication: PRODUCT USED FOR UNKNOWN INDICATION
     Dosage: 10 MG, QD
     Route: 062
     Dates: start: 20140514
  12. TOLVAPTAN [Suspect]
     Active Substance: TOLVAPTAN
     Indication: HYPONATRAEMIA
     Dosage: 15 MG, QD
     Route: 048
     Dates: start: 20140512
  13. MAXIPIME BORYUNG [Concomitant]
     Indication: HYPONATRAEMIA
     Dosage: 2 G, QD
     Route: 042
     Dates: start: 20140514, end: 20140519
  14. OLIMER N9E [Concomitant]
     Indication: PRE-EXISTING DISEASE
     Dosage: 1500 ML, QD (N9E)
     Route: 042
     Dates: start: 20140512, end: 20140524
  15. MUCOSTEN [Concomitant]
     Indication: PRE-EXISTING DISEASE
     Dosage: 90 MG, QD
     Route: 042
     Dates: end: 20140523
  16. DICKNOL [Concomitant]
     Indication: PRE-EXISTING DISEASE
     Dosage: 90 MG, QD
     Route: 042
     Dates: start: 20140513, end: 20140513
  17. MAXIPIME BORYUNG [Concomitant]
     Indication: HYPERVOLAEMIA
  18. METRONIDAZOLE BAXTER [Concomitant]
     Active Substance: METRONIDAZOLE
     Indication: HYPERVOLAEMIA

REACTIONS (5)
  - Infection [Not Recovered/Not Resolved]
  - Hypocalcaemia [Not Recovered/Not Resolved]
  - Tachycardia [Not Recovered/Not Resolved]
  - Malignant neoplasm progression [Fatal]
  - Anaemia [Recovered/Resolved]

NARRATIVE: CASE EVENT DATE: 20140514
